FAERS Safety Report 4847962-6 (Version None)
Quarter: 2005Q4

REPORT INFORMATION
  Report Type: 
  Country: None (occurrence: None)
  Receive Date: 20051206
  Receipt Date: 20051115
  Transmission Date: 20060501
  Serious: Yes (Hospitalization)
  Sender: FDA-Public Use
  Company Number: US200511001252

PATIENT
  Age: 87 Year
  Sex: Female

DRUGS (6)
  1. FORTEO [Suspect]
     Indication: OSTEOPOROSIS
     Dosage: DAILY (1/D); UNK, OTHER, UNK
     Dates: start: 20050901, end: 20051001
  2. FORTEO [Suspect]
     Indication: OSTEOPOROSIS
     Dosage: DAILY (1/D); UNK, OTHER, UNK
     Dates: start: 20021001, end: 20051104
  3. FORTEO [Suspect]
     Indication: OSTEOPOROSIS
     Dosage: DAILY (1/D); UNK, OTHER, UNK
     Dates: start: 20051115
  4. VITAMINS-MINERALS THERAPEUTIC (VITAMINS-MINERALS THERAPEUTIC UNKNOWN F [Concomitant]
  5. ASA (ASPIRIN (ACETYLSALICYLIC ACID)) [Concomitant]
  6. CELEBREX [Concomitant]

REACTIONS (4)
  - ARTHRALGIA [None]
  - BONE PAIN [None]
  - DIVERTICULITIS INTESTINAL HAEMORRHAGIC [None]
  - MYALGIA [None]
